FAERS Safety Report 11240524 (Version 1)
Quarter: 2015Q3

REPORT INFORMATION
  Report Type: Spontaneous
  Country: US (occurrence: None)
  Receive Date: 20150701
  Receipt Date: 20150701
  Transmission Date: 20151125
  Serious: Yes (Hospitalization)
  Sender: FDA-Public Use
  Company Number: None

PATIENT
  Age: 60 Year
  Sex: Male
  Weight: 161 kg

DRUGS (1)
  1. CLINDAMYCIN [Suspect]
     Active Substance: CLINDAMYCIN\CLINDAMYCIN PHOSPHATE
     Indication: INFECTION
     Dosage: 600 MG, TID, PO
     Route: 048
     Dates: start: 20150218, end: 20150224

REACTIONS (2)
  - Unevaluable event [None]
  - Rash [None]

NARRATIVE: CASE EVENT DATE: 20150224
